FAERS Safety Report 10491312 (Version 1)
Quarter: 2014Q4

REPORT INFORMATION
  Report Type: Spontaneous
  Country: US (occurrence: US)
  Receive Date: 20141002
  Receipt Date: 20141002
  Transmission Date: 20150528
  Serious: No
  Sender: FDA-Public Use
  Company Number: US-GLAXOSMITHKLINE-A1051077A

PATIENT
  Age: 65 Year
  Sex: Female

DRUGS (9)
  1. MOEXIPRIL [Concomitant]
     Active Substance: MOEXIPRIL HYDROCHLORIDE
  2. OXYCODONE [Concomitant]
     Active Substance: OXYCODONE
  3. VALACYCLOVIR [Concomitant]
     Active Substance: VALACYCLOVIR HYDROCHLORIDE
  4. PROZAC [Concomitant]
     Active Substance: FLUOXETINE HYDROCHLORIDE
  5. HYOSCYAMINE [Concomitant]
     Active Substance: HYOSCYAMINE
  6. ADVAIR HFA [Suspect]
     Active Substance: FLUTICASONE PROPIONATE\SALMETEROL XINAFOATE
     Indication: ASTHMA
     Dosage: 1PUFF PER DAY
     Route: 055
     Dates: start: 2010, end: 20131122
  7. OMEPRAZOLE. [Concomitant]
     Active Substance: OMEPRAZOLE
  8. FENTANYL. [Concomitant]
     Active Substance: FENTANYL
  9. POTASSIUM [Concomitant]
     Active Substance: POTASSIUM

REACTIONS (9)
  - Lip swelling [Unknown]
  - Mouth swelling [Unknown]
  - Pharyngeal oedema [Unknown]
  - Drug administration error [Unknown]
  - Feeling hot [Recovering/Resolving]
  - Pharyngeal erythema [Unknown]
  - Burning sensation [Unknown]
  - Swollen tongue [Unknown]
  - Throat irritation [Unknown]

NARRATIVE: CASE EVENT DATE: 20131122
